FAERS Safety Report 18761965 (Version 2)
Quarter: 2021Q1

REPORT INFORMATION
  Report Type: Spontaneous
  Country: CA (occurrence: CA)
  Receive Date: 20210120
  Receipt Date: 20210128
  Transmission Date: 20210419
  Serious: Yes (Death, Other)
  Sender: FDA-Public Use
  Company Number: CA-GLAXOSMITHKLINE-CA2021GSK012640

PATIENT
  Sex: Male

DRUGS (1)
  1. AVANDIA [Suspect]
     Active Substance: ROSIGLITAZONE MALEATE
     Indication: DIABETES MELLITUS
     Dosage: 4 MG, BID
     Route: 048
     Dates: start: 20041028, end: 20060728

REACTIONS (4)
  - Death [Fatal]
  - Myocardial infarction [Unknown]
  - Cardiac disorder [Unknown]
  - Bundle branch block bilateral [Unknown]
